FAERS Safety Report 5664610-6 (Version None)
Quarter: 2008Q1

REPORT INFORMATION
  Report Type: 
  Country: None (occurrence: None)
  Receive Date: 20080314
  Receipt Date: 20080228
  Transmission Date: 20080703
  Serious: Yes (Other)
  Sender: FDA-Public Use
  Company Number: DE-ROCHE-548008

PATIENT
  Age: 76 Year
  Sex: Female
  Weight: 80 kg

DRUGS (4)
  1. BONIVA [Suspect]
     Indication: OSTEOPOROSIS
     Route: 048
     Dates: start: 20080108, end: 20080201
  2. MARCUMAR [Suspect]
     Dosage: DOSE: ^INR DEPENDEND^
     Route: 048
     Dates: start: 20050501
  3. BELOC-ZOK [Concomitant]
     Indication: HYPERTENSION
     Dosage: DOSE REPORTED AS: 95/DAY
     Route: 048
     Dates: start: 20050501
  4. FLECAINIDE ACETATE [Concomitant]
     Indication: HYPERTENSION
     Dosage: DOSE REPORTED AS: 150/DAY DRUG NAME: ^FLECAINID^
     Route: 048
     Dates: start: 20050501

REACTIONS (3)
  - BLOOD PRESSURE INCREASED [None]
  - DRUG INEFFECTIVE [None]
  - PROTHROMBIN TIME SHORTENED [None]
